FAERS Safety Report 6382733-3 (Version None)
Quarter: 2009Q3

REPORT INFORMATION
  Report Type: 
  Country: None (occurrence: None)
  Receive Date: 20090930
  Receipt Date: 20090921
  Transmission Date: 20100115
  Serious: Yes (Other)
  Sender: FDA-Public Use
  Company Number: FR-TEVA-210054ISR

PATIENT
  Sex: Female

DRUGS (6)
  1. METHOTREXATE [Suspect]
     Dates: start: 19980101, end: 20000101
  2. METHOTREXATE [Suspect]
  3. AZATHIOPRINE [Suspect]
     Dates: start: 20020101
  4. PREDNISONE [Suspect]
  5. SODIUM CALCIUM EDETATE [Suspect]
     Route: 058
     Dates: start: 20061101
  6. IMMUNE GLOBULIN INTRAVENOUS (HUMAN) [Concomitant]

REACTIONS (2)
  - EPSTEIN-BARR VIRUS ASSOCIATED LYMPHOPROLIFERATIVE DISORDER [None]
  - INJECTION SITE NECROSIS [None]
